FAERS Safety Report 6263063-7 (Version None)
Quarter: 2009Q3

REPORT INFORMATION
  Report Type: 
  Country: None (occurrence: None)
  Receive Date: 20090708
  Receipt Date: 20090708
  Transmission Date: 20100115
  Serious: Yes (Other)
  Sender: FDA-Public Use
  Company Number: None

PATIENT
  Sex: Female
  Weight: 180 kg

DRUGS (1)
  1. METHOTREXATE [Suspect]
     Dosage: SEE IMAGE

REACTIONS (1)
  - DRUG PRESCRIBING ERROR [None]
